FAERS Safety Report 25211283 (Version 2)
Quarter: 2025Q3

REPORT INFORMATION
  Report Type: Spontaneous
  Country: US (occurrence: US)
  Receive Date: 20250417
  Receipt Date: 20250710
  Transmission Date: 20251021
  Serious: No
  Sender: BAUSCH AND LOMB
  Company Number: US-BAUSCHBL-2025BNL005789

PATIENT
  Age: 89 Year
  Sex: Female
  Weight: 52.6 kg

DRUGS (3)
  1. DORZOLAMIDE HYDROCHLORIDE [Suspect]
     Active Substance: DORZOLAMIDE HYDROCHLORIDE
     Indication: Product used for unknown indication
     Route: 065
  2. LATANOPROST [Suspect]
     Active Substance: LATANOPROST
     Indication: Product used for unknown indication
     Route: 065
  3. SOOTHE XP [Suspect]
     Active Substance: LIGHT MINERAL OIL\MINERAL OIL
     Indication: Dry eye
     Route: 047
     Dates: start: 20250330

REACTIONS (1)
  - Vision blurred [Recovering/Resolving]

NARRATIVE: CASE EVENT DATE: 20250330
